FAERS Safety Report 6019836-9 (Version None)
Quarter: 2008Q4

REPORT INFORMATION
  Report Type: 
  Country: None (occurrence: None)
  Receive Date: 20081224
  Receipt Date: 20081216
  Transmission Date: 20090506
  Serious: Yes (Other)
  Sender: FDA-Public Use
  Company Number: FR-JNJFOC-20081205327

PATIENT
  Age: 24 Year
  Sex: Female

DRUGS (19)
  1. IMODIUM [Suspect]
     Indication: DRUG USE FOR UNKNOWN INDICATION
     Route: 065
  2. CYTARABINE [Suspect]
  3. CYTARABINE [Suspect]
     Indication: LEUKAEMIA
  4. CERUBIDINE [Suspect]
     Indication: LEUKAEMIA
  5. TAZOCILLINE [Suspect]
     Indication: PYREXIA
  6. VANCOMYCIN HCL [Suspect]
     Indication: PYREXIA
  7. PLITICAN [Suspect]
     Indication: DRUG USE FOR UNKNOWN INDICATION
  8. SPASFON [Suspect]
     Indication: DRUG USE FOR UNKNOWN INDICATION
  9. DEBRIDAT [Suspect]
     Indication: DRUG USE FOR UNKNOWN INDICATION
  10. PRIMPERAN TAB [Suspect]
     Indication: DRUG USE FOR UNKNOWN INDICATION
  11. TRAMADOL HCL [Suspect]
     Indication: DRUG USE FOR UNKNOWN INDICATION
  12. PERFALGAN [Suspect]
     Indication: DRUG USE FOR UNKNOWN INDICATION
  13. ECONAZOLE NITRATE [Suspect]
     Indication: DRUG USE FOR UNKNOWN INDICATION
  14. ACUPAN [Suspect]
     Indication: DRUG USE FOR UNKNOWN INDICATION
  15. SMECTA [Suspect]
     Indication: DRUG USE FOR UNKNOWN INDICATION
  16. AMIKACIN [Suspect]
     Indication: DRUG USE FOR UNKNOWN INDICATION
  17. TARGOCID [Suspect]
     Indication: DRUG USE FOR UNKNOWN INDICATION
  18. ATARAX [Suspect]
     Indication: DRUG USE FOR UNKNOWN INDICATION
  19. TAVANIC [Suspect]
     Indication: DRUG USE FOR UNKNOWN INDICATION

REACTIONS (2)
  - DRUG EXPOSURE DURING PREGNANCY [None]
  - PREMATURE BABY [None]
